FAERS Safety Report 5151699-6 (Version None)
Quarter: 2006Q4

REPORT INFORMATION
  Report Type: 
  Country: None (occurrence: None)
  Receive Date: 20061109
  Receipt Date: 20061024
  Transmission Date: 20070319
  Serious: Yes (Death)
  Sender: FDA-Public Use
  Company Number: PAR_1047_2006

PATIENT
  Age: 47 Year
  Sex: 0

DRUGS (2)
  1. DIAZEPAM [Suspect]
     Dosage: DF
  2. OXYCODONE HCL [Suspect]
     Dosage: DF

REACTIONS (3)
  - CARDIAC ARREST [None]
  - DRUG ABUSER [None]
  - RESPIRATORY ARREST [None]
